FAERS Safety Report 4272908-1 (Version None)
Quarter: 2004Q1

REPORT INFORMATION
  Report Type: 
  Country: None (occurrence: None)
  Receive Date: 20040114
  Receipt Date: 20040105
  Transmission Date: 20041129
  Serious: Yes (Death, Hospitalization)
  Sender: FDA-Public Use
  Company Number: US062431

PATIENT
  Age: 74 Year
  Sex: Female

DRUGS (1)
  1. ENBREL [Suspect]
     Indication: RHEUMATOID ARTHRITIS
     Dosage: 25 MG, TWICE WEEKLY, SC
     Route: 058
     Dates: start: 20021116, end: 20031001

REACTIONS (5)
  - CARDIAC FAILURE [None]
  - DYSPNOEA [None]
  - RESPIRATORY FAILURE [None]
  - SKIN CANCER [None]
  - TONGUE NEOPLASM MALIGNANT STAGE UNSPECIFIED [None]
